FAERS Safety Report 7573724-5 (Version None)
Quarter: 2011Q2

REPORT INFORMATION
  Report Type: 
  Country: None (occurrence: None)
  Receive Date: 20110627
  Receipt Date: 20110622
  Transmission Date: 20111010
  Serious: Yes (Disabling, Other)
  Sender: FDA-Public Use
  Company Number: US-PFIZER INC-2011138536

PATIENT
  Sex: Female

DRUGS (3)
  1. COUMADIN [Concomitant]
     Dosage: UNK
  2. WELCHOL [Suspect]
     Dosage: UNK
  3. LIPITOR [Suspect]
     Indication: BLOOD CHOLESTEROL INCREASED
     Dosage: UNK
     Route: 048

REACTIONS (3)
  - MUSCLE SPASMS [None]
  - ABASIA [None]
  - MYALGIA [None]
